FAERS Safety Report 10189031 (Version 17)
Quarter: 2016Q1

REPORT INFORMATION
  Report Type: Report from Study
  Country: US (occurrence: US)
  Receive Date: 20140522
  Receipt Date: 20160314
  Transmission Date: 20160525
  Serious: Yes (Hospitalization, Other)
  Sender: FDA-Public Use
  Company Number: US-SA-2014SA018229

PATIENT
  Age: 57 Year
  Sex: Female
  Weight: 81.19 kg

DRUGS (5)
  1. AUBAGIO [Suspect]
     Active Substance: TERIFLUNOMIDE
     Indication: MULTIPLE SCLEROSIS
     Dosage: DOSE AND DAILY DOSE: 14 UNITS UNSPECIFIED
     Route: 048
     Dates: start: 20150609, end: 20150706
  2. AUBAGIO [Suspect]
     Active Substance: TERIFLUNOMIDE
     Indication: MULTIPLE SCLEROSIS
     Dosage: DOSE AND DAILY DOSE: 14 UNITS UNSPECIFIED
     Route: 048
     Dates: start: 2015
  3. AUBAGIO [Suspect]
     Active Substance: TERIFLUNOMIDE
     Indication: MULTIPLE SCLEROSIS
     Dosage: DOSE AND DAILY DOSE: 14 UNITS UNSPECIFIED
     Route: 048
     Dates: start: 20140129, end: 20150430
  4. AUBAGIO [Suspect]
     Active Substance: TERIFLUNOMIDE
     Indication: MULTIPLE SCLEROSIS
     Route: 048
  5. TECFIDERA [Concomitant]
     Active Substance: DIMETHYL FUMARATE
     Indication: MULTIPLE SCLEROSIS
     Dates: start: 20150415, end: 20150429

REACTIONS (50)
  - Hand fracture [Unknown]
  - Pain in extremity [Unknown]
  - Memory impairment [Not Recovered/Not Resolved]
  - Laryngitis [Unknown]
  - Pain [Recovering/Resolving]
  - Condition aggravated [Not Recovered/Not Resolved]
  - Pyrexia [Recovered/Resolved]
  - Dyspnoea [Recovered/Resolved]
  - Chest pain [Recovering/Resolving]
  - Alopecia [Not Recovered/Not Resolved]
  - Sinusitis [Recovering/Resolving]
  - Temperature intolerance [Unknown]
  - Nasopharyngitis [Recovered/Resolved]
  - Weight increased [Not Recovered/Not Resolved]
  - Pneumonia [Recovered/Resolved]
  - Cough [Recovered/Resolved]
  - Feeling abnormal [Recovered/Resolved]
  - Peroneal nerve palsy [Not Recovered/Not Resolved]
  - Muscular weakness [Not Recovered/Not Resolved]
  - Memory impairment [Unknown]
  - Paraesthesia [Unknown]
  - Migraine [Not Recovered/Not Resolved]
  - Infected bite [Unknown]
  - Urinary tract infection [Recovered/Resolved]
  - Cognitive disorder [Not Recovered/Not Resolved]
  - Feeling abnormal [Recovering/Resolving]
  - Viral infection [Unknown]
  - Migraine [Unknown]
  - Headache [Not Recovered/Not Resolved]
  - Staphylococcal infection [Unknown]
  - Wheezing [Recovered/Resolved]
  - Dyspnoea [Recovering/Resolving]
  - Drug dose omission [Unknown]
  - Fall [Unknown]
  - Speech disorder [Not Recovered/Not Resolved]
  - Visual impairment [Not Recovered/Not Resolved]
  - Stress [Unknown]
  - Cough [Recovering/Resolving]
  - Endodontic procedure [Unknown]
  - Fine motor skill dysfunction [Not Recovered/Not Resolved]
  - Bronchitis [Recovering/Resolving]
  - Cognitive disorder [Unknown]
  - Influenza like illness [Recovering/Resolving]
  - Pyrexia [Recovering/Resolving]
  - Blood pressure increased [Unknown]
  - Fatigue [Recovered/Resolved]
  - Multiple sclerosis relapse [Not Recovered/Not Resolved]
  - Bladder disorder [Unknown]
  - Tonsillitis [Unknown]
  - Ill-defined disorder [Not Recovered/Not Resolved]

NARRATIVE: CASE EVENT DATE: 2014
